FAERS Safety Report 7245491-6 (Version None)
Quarter: 2011Q1

REPORT INFORMATION
  Report Type: 
  Country: None (occurrence: None)
  Receive Date: 20110126
  Receipt Date: 20110112
  Transmission Date: 20110831
  Serious: Yes (Hospitalization, Other)
  Sender: FDA-Public Use
  Company Number: US-ELI_LILLY_AND_COMPANY-US201008000330

PATIENT
  Sex: Male

DRUGS (2)
  1. FORTEO [Suspect]
     Indication: SPINAL FRACTURE
     Dosage: 20 UG, DAILY (1/D)
     Route: 065
  2. COUMADIN [Concomitant]

REACTIONS (4)
  - PANCREATIC NEOPLASM [None]
  - BLOOD GLUCOSE ABNORMAL [None]
  - PNEUMONIA [None]
  - OPEN WOUND [None]
